FAERS Safety Report 5029141-5 (Version None)
Quarter: 2006Q2

REPORT INFORMATION
  Report Type: 
  Country: None (occurrence: None)
  Receive Date: 20060619
  Receipt Date: 20060222
  Transmission Date: 20061013
  Serious: Yes (Other)
  Sender: FDA-Public Use
  Company Number: US-BRISTOL-MYERS SQUIBB COMPANY-13294335

PATIENT
  Age: 88 Year
  Sex: Male

DRUGS (11)
  1. ERBITUX [Suspect]
     Indication: SQUAMOUS CELL CARCINOMA
     Dosage: FIRST DOSE (700MG): STOPPED, RESTARTED.  SECOND INFUSION 14-FEB-2006.
     Route: 042
     Dates: start: 20051011, end: 20051011
  2. CARBOPLATIN [Concomitant]
  3. ETOPOSIDE [Concomitant]
  4. BENADRYL [Concomitant]
     Indication: PREMEDICATION
     Route: 042
     Dates: start: 20051011, end: 20051011
  5. LUMIGAN [Concomitant]
  6. MULTIVITAMIN [Concomitant]
  7. COUMADIN [Concomitant]
  8. PHENERGAN HCL [Concomitant]
  9. THYROID TAB [Concomitant]
  10. MEGACE [Concomitant]
  11. KYTRIL [Concomitant]

REACTIONS (2)
  - ANXIETY [None]
  - INFUSION RELATED REACTION [None]
